FAERS Safety Report 8919166 (Version 1)
Quarter: 2012Q4

REPORT INFORMATION
  Report Type: 
  Country: FR (occurrence: FR)
  Receive Date: 20121121
  Receipt Date: 20121121
  Transmission Date: 20130627
  Serious: Yes (Hospitalization, Other)
  Sender: FDA-Public Use
  Company Number: FR-009507513-1211FRA008331

PATIENT
  Age: 77 Year
  Sex: Male

DRUGS (5)
  1. TIENAM 500MG/500MG, POUDRE POUR PERFUSION [Suspect]
     Indication: ANTIBIOTIC PROPHYLAXIS
     Dosage: 2250 mg, qd
     Route: 042
     Dates: start: 20120713, end: 20120717
  2. ERYTHROCIN [Suspect]
     Indication: ANTIBIOTIC PROPHYLAXIS
     Dosage: UNK
     Route: 048
     Dates: start: 20120624, end: 20120702
  3. TAZOCILLINE [Suspect]
     Indication: ANTIBIOTIC PROPHYLAXIS
     Dosage: UNK
     Route: 042
     Dates: start: 20120624, end: 20120709
  4. AMIKACIN [Concomitant]
     Dosage: UNK
     Dates: start: 20120713
  5. VANCOMYCIN [Concomitant]

REACTIONS (6)
  - Drug reaction with eosinophilia and systemic symptoms [Recovering/Resolving]
  - Erythema [Recovering/Resolving]
  - Hepatocellular injury [Recovering/Resolving]
  - Renal failure acute [Recovering/Resolving]
  - Pyrexia [Recovered/Resolved]
  - Eosinophilia [Recovering/Resolving]
